FAERS Safety Report 10159613 (Version 1)
Quarter: 2014Q2

REPORT INFORMATION
  Report Type: Spontaneous
  Country: CH (occurrence: CH)
  Receive Date: 20140508
  Receipt Date: 20140508
  Transmission Date: 20141212
  Serious: Yes (Hospitalization)
  Sender: FDA-Public Use
  Company Number: CH-BAYER-2014-065008

PATIENT
  Age: 81 Year
  Sex: Male

DRUGS (11)
  1. ASPIRIN CARDIO [Suspect]
     Indication: PRODUCT USED FOR UNKNOWN INDICATION
     Dosage: 100 MG, QD
     Route: 048
  2. OLFEN-75 RETARD DEPOTABS [Suspect]
     Indication: PRODUCT USED FOR UNKNOWN INDICATION
     Dosage: 75 MG, QD
     Dates: end: 20140416
  3. AMLODIPIN SANDOZ [Concomitant]
     Indication: ESSENTIAL HYPERTENSION
     Dosage: 5 MG, UNK
     Route: 048
  4. ATACAND PLUS [Concomitant]
     Indication: ESSENTIAL HYPERTENSION
     Dosage: 1 DF, UNK
     Route: 048
  5. CONDROSULF [Concomitant]
     Indication: OSTEOARTHRITIS
     Dosage: 400 MG, BID
     Route: 048
  6. METFORMIN [Concomitant]
     Indication: TYPE 2 DIABETES MELLITUS
     Dosage: 500 MG, BID
  7. NEXIUM [Concomitant]
     Indication: PRODUCT USED FOR UNKNOWN INDICATION
     Dosage: 40 MG, QD
  8. PRADIF T [Concomitant]
     Indication: PROSTATE CANCER
     Dosage: 0.4 MG, QD
     Route: 048
  9. SIMVASTATIN [Concomitant]
     Indication: DYSLIPIDAEMIA
     Dosage: 40 MG, UNK
     Route: 048
  10. TEBOKAN [Concomitant]
     Indication: PRODUCT USED FOR UNKNOWN INDICATION
     Route: 017
  11. INSULIN NOVORAPID [Concomitant]
     Indication: TYPE 2 DIABETES MELLITUS
     Dosage: UNK
     Route: 058
     Dates: start: 20140416, end: 20140419

REACTIONS (3)
  - Haemorrhagic anaemia [Unknown]
  - Drug interaction [Recovered/Resolved]
  - Epistaxis [Recovered/Resolved]
